FAERS Safety Report 17190259 (Version 1)
Quarter: 2019Q4

REPORT INFORMATION
  Report Type: Spontaneous
  Country: IT (occurrence: IT)
  Receive Date: 20191223
  Receipt Date: 20191223
  Transmission Date: 20200122
  Serious: Yes (Hospitalization)
  Sender: FDA-Public Use
  Company Number: IT-TEVA-2019-IT-1155867

PATIENT
  Age: 94 Year
  Sex: Female

DRUGS (7)
  1. IPRAXA [Concomitant]
  2. RAMIPRIL. [Suspect]
     Active Substance: RAMIPRIL
     Dosage: 10 MG
     Route: 048
     Dates: start: 20190101, end: 20191028
  3. NORVASC [Suspect]
     Active Substance: AMLODIPINE BESYLATE
     Route: 048
     Dates: start: 20190101, end: 20191028
  4. LASIX [Concomitant]
     Active Substance: FUROSEMIDE
  5. LIXIANA [Concomitant]
     Active Substance: EDOXABAN TOSYLATE
  6. ALOPERIDOLO [Concomitant]
     Active Substance: HALOPERIDOL
  7. BISOPROLOL HEMIFUMARATE [Suspect]
     Active Substance: BISOPROLOL FUMARATE
     Indication: HYPERTENSION
     Dosage: 1.25 MG
     Route: 048
     Dates: start: 20190101, end: 20191028

REACTIONS (1)
  - Bradycardia [Unknown]

NARRATIVE: CASE EVENT DATE: 20191028
